FAERS Safety Report 7511888-X (Version None)
Quarter: 2011Q2

REPORT INFORMATION
  Report Type: 
  Country: None (occurrence: None)
  Receive Date: 20110531
  Receipt Date: 20110526
  Transmission Date: 20111010
  Serious: Yes (Life-Threatening, Hospitalization, Other)
  Sender: FDA-Public Use
  Company Number: CL-PFIZER INC-2011113136

PATIENT
  Sex: Female

DRUGS (4)
  1. CELEBREX [Suspect]
     Indication: SPONDYLITIS
     Dosage: 400 MG, 1X/DAY
     Route: 048
     Dates: start: 20110510, end: 20110510
  2. CENTRUM [Concomitant]
     Dosage: UNK
     Dates: start: 20101201
  3. EUTIROX [Concomitant]
     Dosage: UNK
  4. WELLBUTRIN [Concomitant]
     Dosage: UNK
     Dates: start: 20101201

REACTIONS (4)
  - LARYNGEAL OEDEMA [None]
  - LIP OEDEMA [None]
  - ANAPHYLACTIC SHOCK [None]
  - FACE OEDEMA [None]
